FAERS Safety Report 5774188-4 (Version None)
Quarter: 2008Q2

REPORT INFORMATION
  Report Type: 
  Country: None (occurrence: None)
  Receive Date: 20080601
  Receipt Date: 20080317
  Transmission Date: 20081010
  Serious: No
  Sender: FDA-Public Use
  Company Number: US200710004877

PATIENT
  Age: 45 Year
  Sex: Female
  Weight: 72.1 kg

DRUGS (11)
  1. BYETTA [Suspect]
     Indication: INSULIN RESISTANT DIABETES
     Dosage: SEE IMAGE
     Route: 058
     Dates: start: 20070901, end: 20071001
  2. BYETTA [Suspect]
     Indication: INSULIN RESISTANT DIABETES
     Dosage: SEE IMAGE
     Route: 058
     Dates: start: 20071001
  3. BYETTA [Suspect]
     Indication: INSULIN RESISTANT DIABETES
     Dosage: SEE IMAGE
     Route: 058
     Dates: start: 20071001
  4. BYETTA [Suspect]
  5. EXENATIDE PEN, DISPOSABLE DEVICE (EXENATIDE PEN) PEN,DISPOSABLE [Concomitant]
  6. METFORMIN HCL [Concomitant]
  7. ESTRADIOL [Concomitant]
  8. FLEXERIL [Concomitant]
  9. SYNTHROID [Concomitant]
  10. CYTOMEL [Concomitant]
  11. GLUCOPHAGE [Concomitant]

REACTIONS (8)
  - ACCIDENTAL OVERDOSE [None]
  - DIZZINESS [None]
  - FOOD CRAVING [None]
  - HYPOTHYROIDISM [None]
  - INCORRECT DOSE ADMINISTERED [None]
  - NAUSEA [None]
  - VISION BLURRED [None]
  - WEIGHT DECREASED [None]
